FAERS Safety Report 4723990-6 (Version None)
Quarter: 2005Q3

REPORT INFORMATION
  Report Type: 
  Country: None (occurrence: None)
  Receive Date: 20050721
  Receipt Date: 20050708
  Transmission Date: 20060218
  Serious: Yes (Other)
  Sender: FDA-Public Use
  Company Number: 2005040448

PATIENT
  Age: 79 Year
  Sex: Female

DRUGS (8)
  1. MACUGEN (PEGAPTANIB SODIUM) [Suspect]
     Indication: MACULAR DEGENERATION
     Dosage: 1 IN 6 WK, INTRAVENOUS
     Route: 042
     Dates: start: 20050224
  2. ATORVASTATIN CALCIUM [Concomitant]
  3. NIFEDIPINE [Concomitant]
  4. CLONIDINE [Concomitant]
  5. ASPIRIN [Concomitant]
  6. FUROSEMIDE (FUROSEMIDE) [Concomitant]
  7. POTASSIUM (POTASSIUM) [Concomitant]
  8. CLONIDINE [Concomitant]

REACTIONS (6)
  - ADHESION [None]
  - CATARACT [None]
  - DRUG HYPERSENSITIVITY [None]
  - INTERMEDIATE UVEITIS [None]
  - IRIDOCYCLITIS [None]
  - VITREOUS DETACHMENT [None]
